FAERS Safety Report 7244511-2 (Version None)
Quarter: 2011Q1

REPORT INFORMATION
  Report Type: 
  Country: None (occurrence: None)
  Receive Date: 20110125
  Receipt Date: 20110112
  Transmission Date: 20110831
  Serious: Yes (Hospitalization)
  Sender: FDA-Public Use
  Company Number: DE-WATSON-2011-00635

PATIENT
  Age: 54 Year
  Sex: Female
  Weight: 58 kg

DRUGS (3)
  1. REMIFENTANIL [Suspect]
     Indication: GENERAL ANAESTHESIA
     Dosage: 1000 MCG/H
     Route: 042
  2. PROPOFOL [Suspect]
     Indication: GENERAL ANAESTHESIA
     Dosage: 150 MG
     Route: 042
  3. CLOMIPRAMINE HYDROCHLORIDE [Suspect]
     Indication: OBSESSIVE-COMPULSIVE DISORDER
     Dosage: UNK

REACTIONS (3)
  - MUSCLE SPASMS [None]
  - MASTICATION DISORDER [None]
  - DRUG INTERACTION [None]
